FAERS Safety Report 10228769 (Version 6)
Quarter: 2014Q4

REPORT INFORMATION
  Report Type: Spontaneous
  Country: US (occurrence: US)
  Receive Date: 20140610
  Receipt Date: 20141023
  Transmission Date: 20150528
  Serious: Yes (Hospitalization, Other)
  Sender: FDA-Public Use
  Company Number: US-PFIZER INC-2014124218

PATIENT
  Age: 83 Year
  Sex: Female
  Weight: 63.5 kg

DRUGS (9)
  1. TIKOSYN [Suspect]
     Active Substance: DOFETILIDE
     Dosage: 250 UG, 2X/DAY
     Route: 048
     Dates: start: 20140519, end: 20140527
  2. ERYTHROMYCIN. [Concomitant]
     Active Substance: ERYTHROMYCIN
     Dosage: UNK
     Route: 047
  3. LISINOPRIL. [Suspect]
     Active Substance: LISINOPRIL
     Indication: HYPERTENSION
     Dosage: 10 MG, UNK
  4. SYNTHROID [Suspect]
     Active Substance: LEVOTHYROXINE SODIUM
     Dosage: 0.05 MG, UNK
     Dates: start: 2014
  5. TIKOSYN [Suspect]
     Active Substance: DOFETILIDE
     Indication: ATRIAL FIBRILLATION
     Dosage: 125 UG, 2X/DAY
     Route: 048
     Dates: start: 20140426, end: 20140519
  6. METOPROLOL [Concomitant]
     Active Substance: METOPROLOL
     Dosage: 6.25 MG, 2X/DAY
  7. WARFARIN [Suspect]
     Active Substance: WARFARIN
     Dosage: UNK
     Dates: end: 2014
  8. SYNTHROID [Suspect]
     Active Substance: LEVOTHYROXINE SODIUM
     Indication: HYPOTHYROIDISM
     Dosage: 0.075 MG, UNK
     Dates: start: 1990, end: 2014
  9. ZOCOR [Suspect]
     Active Substance: SIMVASTATIN
     Dosage: 20 MG, UNK

REACTIONS (8)
  - Heart rate decreased [Unknown]
  - Heart rate irregular [Unknown]
  - Gait disturbance [Unknown]
  - Drug ineffective [Unknown]
  - Atrial fibrillation [Unknown]
  - Blood pressure inadequately controlled [Unknown]
  - Hyperthyroidism [Unknown]
  - Joint warmth [Unknown]

NARRATIVE: CASE EVENT DATE: 2014
